FAERS Safety Report 7751926-2 (Version None)
Quarter: 2011Q3

REPORT INFORMATION
  Report Type: 
  Country: None (occurrence: None)
  Receive Date: 20110914
  Receipt Date: 20110914
  Transmission Date: 20111222
  Serious: Yes (Death)
  Sender: FDA-Public Use
  Company Number: None

PATIENT
  Sex: Male
  Weight: 87.7 kg

DRUGS (2)
  1. KLONOPIN [Suspect]
     Indication: DEPRESSION
     Dosage: KLONIPINE .25 MG BID PO
     Route: 048
  2. PROZAC [Suspect]
     Dosage: PROZAC 10 MG EVERY AM PO
     Route: 048

REACTIONS (2)
  - COMPLETED SUICIDE [None]
  - GUN SHOT WOUND [None]
